FAERS Safety Report 9214545 (Version 2)
Quarter: 2013Q3

REPORT INFORMATION
  Report Type: Report from Study
  Country: CN (occurrence: CN)
  Receive Date: 20130405
  Receipt Date: 20130824
  Transmission Date: 20140515
  Serious: Yes (Other)
  Sender: FDA-Public Use
  Company Number: CN-ROCHE-1210123

PATIENT
  Age: 25 Year
  Sex: Female

DRUGS (1)
  1. PEGASYS [Suspect]
     Indication: HEPATITIS C
     Route: 058
     Dates: start: 20120311, end: 20121216

REACTIONS (1)
  - Deep vein thrombosis [Recovering/Resolving]
